FAERS Safety Report 9785640 (Version 1)
Quarter: 2013Q4

REPORT INFORMATION
  Report Type: Spontaneous
  Country: US (occurrence: None)
  Receive Date: 20131226
  Receipt Date: 20131226
  Transmission Date: 20140711
  Serious: No
  Sender: FDA-Public Use
  Company Number: None

PATIENT
  Age: 49 Year
  Sex: Female
  Weight: 63.5 kg

DRUGS (3)
  1. PRILOSEC OTC [Suspect]
     Indication: OFF LABEL USE
     Dosage: 2 PILL SAMPLE PACKS   1X DAILY BEFORE EATING  BY MOUTH
     Route: 048
     Dates: start: 20130912, end: 20130912
  2. PRILOSEC OTC [Suspect]
     Indication: FLATULENCE
     Dosage: 2 PILL SAMPLE PACKS   1X DAILY BEFORE EATING  BY MOUTH
     Route: 048
     Dates: start: 20130912, end: 20130912
  3. VITAMIN D [Concomitant]

REACTIONS (13)
  - Dizziness [None]
  - Dehydration [None]
  - Hyperhidrosis [None]
  - Heart rate increased [None]
  - Flatulence [None]
  - Dizziness [None]
  - Retching [None]
  - Diarrhoea [None]
  - Headache [None]
  - Dry mouth [None]
  - Dyspnoea [None]
  - Chest discomfort [None]
  - Chest pain [None]
